FAERS Safety Report 4513450-X (Version None)
Quarter: 2004Q4

REPORT INFORMATION
  Report Type: 
  Country: None (occurrence: None)
  Receive Date: 20041130
  Receipt Date: 20041019
  Transmission Date: 20050328
  Serious: No
  Sender: FDA-Public Use
  Company Number: US-BRISTOL-MYERS SQUIBB COMPANY-12738050

PATIENT
  Sex: Female

DRUGS (2)
  1. ERBITUX [Suspect]
     Indication: PANCREATIC CARCINOMA
     Route: 042
     Dates: start: 20041018, end: 20041018
  2. GEMCITABINE [Concomitant]
     Dates: start: 20041018, end: 20041018

REACTIONS (1)
  - HEADACHE [None]
